FAERS Safety Report 6791064-9 (Version None)
Quarter: 2010Q2

REPORT INFORMATION
  Report Type: 
  Country: None (occurrence: None)
  Receive Date: 20100624
  Receipt Date: 20100614
  Transmission Date: 20101027
  Serious: Yes (Other)
  Sender: FDA-Public Use
  Company Number: US-WYE-H15687610

PATIENT
  Sex: Female
  Weight: 81.72 kg

DRUGS (4)
  1. PRISTIQ [Suspect]
     Indication: DEPRESSION
     Route: 048
     Dates: start: 20100609, end: 20100612
  2. DILTIAZEM [Concomitant]
     Indication: HYPERTENSION
     Dosage: UNKNOWN
  3. TRIAMTERENE [Concomitant]
     Indication: HYPERTENSION
     Dosage: UNKNOWN
  4. XANAX [Concomitant]
     Indication: ANXIETY
     Dosage: UNKNOWN

REACTIONS (9)
  - ACTIVITIES OF DAILY LIVING IMPAIRED [None]
  - CRYING [None]
  - DIZZINESS [None]
  - DRUG WITHDRAWAL SYNDROME [None]
  - HEADACHE [None]
  - IMPAIRED DRIVING ABILITY [None]
  - NIGHTMARE [None]
  - PALPITATIONS [None]
  - UNEVALUABLE EVENT [None]
